FAERS Safety Report 8586193-3 (Version None)
Quarter: 2012Q3

REPORT INFORMATION
  Report Type: 
  Country: None (occurrence: None)
  Receive Date: 20120810
  Receipt Date: 20120806
  Transmission Date: 20120928
  Serious: Yes (Other)
  Sender: FDA-Public Use
  Company Number: GB-GLAXOSMITHKLINE-B0821254A

PATIENT
  Age: 20 Year
  Sex: Female

DRUGS (4)
  1. KEPPRA [Concomitant]
     Dosage: 500MG TWICE PER DAY
  2. CLONAZEPAM [Concomitant]
  3. POTIGA [Suspect]
     Indication: PARTIAL SEIZURES
     Route: 048
     Dates: start: 20120401
  4. MIDAZOLAM [Concomitant]
     Indication: SEIZURE CLUSTER
     Route: 048

REACTIONS (1)
  - CONVULSION [None]
